FAERS Safety Report 9137074 (Version 1)
Quarter: 2013Q1

REPORT INFORMATION
  Report Type: Spontaneous
  Country: US (occurrence: US)
  Receive Date: 20130219
  Receipt Date: 20130219
  Transmission Date: 20140127
  Serious: Yes (Other)
  Sender: FDA-Public Use
  Company Number: US-BRISTOL-MYERS SQUIBB COMPANY-16794166

PATIENT
  Age: 63 Year
  Sex: Male
  Weight: 74.83 kg

DRUGS (2)
  1. ORENCIA [Suspect]
     Indication: RHEUMATOID ARTHRITIS
     Dosage: 03JUL12, LAST INF:01OCT2012?3VIALS
     Route: 042
  2. METHOTREXATE [Suspect]

REACTIONS (1)
  - Pulmonary mass [Unknown]
